FAERS Safety Report 8987930 (Version 2)
Quarter: 2013Q1

REPORT INFORMATION
  Report Type: Spontaneous
  Country: US (occurrence: US)
  Receive Date: 20121227
  Receipt Date: 20130122
  Transmission Date: 20140127
  Serious: Yes (Hospitalization)
  Sender: FDA-Public Use
  Company Number: US-PFIZER INC-2012327395

PATIENT
  Age: 24 Year
  Sex: Male

DRUGS (4)
  1. DIFLUCAN [Suspect]
     Dosage: 200 MG, 4X/DAY
     Route: 048
  2. DILANTIN [Suspect]
     Dosage: UNK
  3. ARIXTRA [Concomitant]
  4. LOVENOX [Concomitant]

REACTIONS (5)
  - Headache [Unknown]
  - Convulsion [Unknown]
  - Therapy cessation [Unknown]
  - Thrombocytopenia [Unknown]
  - Asthenia [Unknown]
